FAERS Safety Report 16796844 (Version 1)
Quarter: 2019Q3

REPORT INFORMATION
  Report Type: Spontaneous
  Country: ES (occurrence: ES)
  Receive Date: 20190911
  Receipt Date: 20190911
  Transmission Date: 20191005
  Serious: Yes (Death, Other)
  Sender: FDA-Public Use
  Company Number: ES-ABBVIE-19P-144-2921516-00

PATIENT

DRUGS (5)
  1. DARUNAVIR [Interacting]
     Active Substance: DARUNAVIR
     Indication: HIV INFECTION
     Route: 065
     Dates: start: 1999
  2. TENOFOVIR [Concomitant]
     Active Substance: TENOFOVIR
     Indication: HIV INFECTION
     Dates: start: 1999
  3. RITONAVIR. [Suspect]
     Active Substance: RITONAVIR
     Indication: HIV INFECTION
     Route: 065
     Dates: start: 1999
  4. TACROLIMUS. [Interacting]
     Active Substance: TACROLIMUS
     Indication: HIV INFECTION
     Route: 065
     Dates: start: 1999
  5. FTC [Concomitant]
     Active Substance: EMTRICITABINE
     Indication: HIV INFECTION
     Dates: start: 1999

REACTIONS (3)
  - Drug interaction [Unknown]
  - Renal failure [Fatal]
  - Rhabdomyolysis [Fatal]
